FAERS Safety Report 7257242-X (Version None)
Quarter: 2011Q1

REPORT INFORMATION
  Report Type: 
  Country: None (occurrence: None)
  Receive Date: 20110129
  Receipt Date: 20100719
  Transmission Date: 20110831
  Serious: No
  Sender: FDA-Public Use
  Company Number: US-ABBOTT-10P-163-0658706-00

PATIENT
  Sex: Female
  Weight: 98.972 kg

DRUGS (13)
  1. EVOXAC [Concomitant]
     Indication: DRY MOUTH
  2. LOVEXYN [Concomitant]
     Indication: THYROID DISORDER
  3. NEXIUM [Concomitant]
     Indication: GASTROOESOPHAGEAL REFLUX DISEASE
  4. FISH OIL [Concomitant]
     Indication: SUPPLEMENTATION THERAPY
  5. CRANBERRY VITAMIN C [Concomitant]
     Indication: PROPHYLAXIS
  6. HUMIRA [Suspect]
     Indication: RHEUMATOID ARTHRITIS
     Dates: start: 20080101, end: 20100701
  7. FOLIC ACID [Concomitant]
     Indication: RHEUMATOID ARTHRITIS
  8. VERAPAMIL [Concomitant]
     Indication: HYPERTENSION
  9. EVOXAC [Concomitant]
     Indication: DRY EYE
  10. CRANBERRY VITAMIN C [Concomitant]
     Indication: CYSTITIS
  11. HUMIRA [Suspect]
     Dates: start: 20100701
  12. DARVOCET-N 100 [Concomitant]
     Indication: PAIN
  13. LIPITOR [Concomitant]
     Indication: BLOOD CHOLESTEROL INCREASED

REACTIONS (3)
  - RHEUMATOID ARTHRITIS [None]
  - BRONCHITIS [None]
  - PAIN [None]
